FAERS Safety Report 7938102-5 (Version None)
Quarter: 2011Q4

REPORT INFORMATION
  Report Type: 
  Country: None (occurrence: None)
  Receive Date: 20111123
  Receipt Date: 20111121
  Transmission Date: 20120403
  Serious: Yes (Death, Other)
  Sender: FDA-Public Use
  Company Number: US-AMGEN-USASP2011054800

PATIENT
  Age: 43 Year
  Sex: Female

DRUGS (8)
  1. NPLATE [Suspect]
     Indication: IDIOPATHIC THROMBOCYTOPENIC PURPURA
     Dates: start: 20090401, end: 20101103
  2. DANAZOL [Concomitant]
     Indication: IDIOPATHIC THROMBOCYTOPENIC PURPURA
  3. IRON SULFATETHIAMIN COMPOUND TAB [Concomitant]
     Dosage: 325 MG, UNK
  4. PERCOCET [Concomitant]
  5. RANITIDINE [Concomitant]
     Dosage: 150 MG, UNK
     Route: 048
  6. CELEBREX [Concomitant]
     Dosage: UNK UNK, PRN
  7. PLAQUENIL [Concomitant]
     Dosage: 200 MG, BID
  8. LISINOPRIL [Concomitant]

REACTIONS (4)
  - DRUG INEFFECTIVE [None]
  - IDIOPATHIC THROMBOCYTOPENIC PURPURA [None]
  - CEREBRAL HAEMORRHAGE [None]
  - SYSTEMIC LUPUS ERYTHEMATOSUS [None]
